FAERS Safety Report 23123450 (Version 6)
Quarter: 2024Q3

REPORT INFORMATION
  Report Type: Spontaneous
  Country: US (occurrence: US)
  Receive Date: 20231030
  Receipt Date: 20240822
  Transmission Date: 20241017
  Serious: Yes (Death)
  Sender: JOHNSON AND JOHNSON
  Company Number: US-JNJFOC-20231050227

PATIENT
  Age: 77 Year
  Sex: Female

DRUGS (2)
  1. TYLENOL EXTRA STRENGTH [Suspect]
     Active Substance: ACETAMINOPHEN
     Indication: Pain
     Dosage: 2 PILLS TWICE A DAY USED IT FOR 23 DAYS TOTAL
     Route: 065
     Dates: start: 20230714, end: 20230805
  2. QUININE [Suspect]
     Active Substance: QUININE
     Indication: Product used for unknown indication
     Route: 065

REACTIONS (2)
  - Death [Fatal]
  - Suspected product tampering [Fatal]

NARRATIVE: CASE EVENT DATE: 20230101
